FAERS Safety Report 7514606-4 (Version None)
Quarter: 2011Q2

REPORT INFORMATION
  Report Type: 
  Country: None (occurrence: None)
  Receive Date: 20110520
  Receipt Date: 20110511
  Transmission Date: 20111010
  Serious: Yes (Death, Hospitalization)
  Sender: FDA-Public Use
  Company Number: KV201000364

PATIENT
  Age: 65 Year
  Sex: Male
  Weight: 84.8 kg

DRUGS (29)
  1. CARBIDOPA/LEVODOPA (CARBIDOPA, LEVOODOPA) [Concomitant]
  2. COLCHICINE [Concomitant]
  3. TRAZODONE HCL [Concomitant]
  4. AMITRIPTYLINE HCL (AMITRIPTYLINE HYDROCHLIRDE) [Concomitant]
  5. AMOXICILLIN [Concomitant]
  6. METHOCARBAMOL [Concomitant]
  7. BUSPIRONE HYDROCHLORIDE [Suspect]
     Indication: POST-TRAUMATIC STRESS DISORDER
     Dosage: 5 MG, TID, ORAL
     Route: 048
     Dates: start: 20040330, end: 20040512
  8. BISACODYL (BISACODYL) [Concomitant]
  9. CEFAOLIN (CEFAZOLIN) [Concomitant]
  10. DOCUSATE SODIUM (DOCUSATE SODIUM) [Concomitant]
  11. DOXEPIN HYDROCHLORIDE [Concomitant]
  12. FLUCONONIDE (FLUOCINONIDE) [Concomitant]
  13. FLUOXETINE [Concomitant]
  14. ROPINIROLE [Concomitant]
  15. ALLOPURINOL [Concomitant]
  16. DIVALPROEX (VALPROATE SEMISODIUM) [Concomitant]
  17. EZETIMIBE [Concomitant]
  18. OMEPRAZOILE (OMEPRAZOLE) [Concomitant]
  19. ASPIRIN [Concomitant]
  20. OXYCODONE (OXYCODOEN) [Concomitant]
  21. FLUTICASONE PROPIONATE [Concomitant]
  22. RABEPRAZOLE (RABEPRAZOLE) [Concomitant]
  23. KETOTIFEN (KETOTIFEN) [Concomitant]
  24. MAGNESIUM HYDROXIDE TAB [Concomitant]
  25. GUAIFENESIN (GUAIFENESINE) [Concomitant]
  26. FISH OIL (FISH OIL) [Concomitant]
  27. FLUNISOLIDE (FLUNISOLIDE) [Concomitant]
  28. LEVOTHYROXINE SODIUM [Concomitant]
  29. TEMAXEPAM (TEMAZEPAM) [Concomitant]

REACTIONS (28)
  - RHINALGIA [None]
  - EPISTAXIS [None]
  - JAUNDICE [None]
  - SYNCOPE [None]
  - FACIAL BONES FRACTURE [None]
  - CARDIAC FAILURE [None]
  - GENERAL PHYSICAL HEALTH DETERIORATION [None]
  - FATIGUE [None]
  - CARDIOMYOPATHY [None]
  - HEPATIC ENZYME ABNORMAL [None]
  - DIZZINESS [None]
  - SINUS HEADACHE [None]
  - LACERATION [None]
  - FALL [None]
  - CONGESTIVE CARDIOMYOPATHY [None]
  - RENAL FAILURE [None]
  - DYSPNOEA [None]
  - OVERDOSE [None]
  - SOMNOLENCE [None]
  - BACK PAIN [None]
  - OEDEMA PERIPHERAL [None]
  - VISION BLURRED [None]
  - INSOMNIA [None]
  - CARDIAC FAILURE CONGESTIVE [None]
  - ANXIETY [None]
  - CLAVICLE FRACTURE [None]
  - PANIC ATTACK [None]
  - DEPRESSION [None]
